FAERS Safety Report 21418943 (Version 1)
Quarter: 2022Q4

REPORT INFORMATION
  Report Type: Spontaneous
  Country: US (occurrence: None)
  Receive Date: 20221005
  Receipt Date: 20221005
  Transmission Date: 20230113
  Serious: No
  Sender: FDA-Public Use
  Company Number: None

PATIENT
  Age: 88 Year
  Sex: Female

DRUGS (2)
  1. TADALAFIL [Suspect]
     Active Substance: TADALAFIL
     Indication: Pulmonary arterial hypertension
     Dosage: FREQUENCY : DAILY;?
     Route: 048
     Dates: start: 20220923
  2. OPSUMIT [Concomitant]
     Active Substance: MACITENTAN

REACTIONS (4)
  - Headache [None]
  - Pain in extremity [None]
  - Back pain [None]
  - Therapy cessation [None]

NARRATIVE: CASE EVENT DATE: 20220930
